FAERS Safety Report 15967950 (Version 1)
Quarter: 2019Q1

REPORT INFORMATION
  Report Type: Spontaneous
  Country: US (occurrence: US)
  Receive Date: 20190215
  Receipt Date: 20190215
  Transmission Date: 20190418
  Serious: Yes (Other)
  Sender: FDA-Public Use
  Company Number: None

PATIENT
  Age: 62 Year
  Sex: Male
  Weight: 81 kg

DRUGS (5)
  1. ABIRATERONE ACETATE. [Suspect]
     Active Substance: ABIRATERONE ACETATE
     Indication: LUNG NEOPLASM MALIGNANT
     Route: 048
     Dates: start: 20190124
  2. ZYTIGA [Suspect]
     Active Substance: ABIRATERONE ACETATE
     Indication: LUNG NEOPLASM MALIGNANT
     Route: 048
     Dates: start: 20181011, end: 20190123
  3. VITAMIN C IMMUNE HEALTH [Concomitant]
  4. ZYTIGA [Suspect]
     Active Substance: ABIRATERONE ACETATE
     Indication: PROSTATE CANCER
     Route: 048
     Dates: start: 20181011, end: 20190123
  5. VITAMIN E COMPLETE [Concomitant]

REACTIONS (1)
  - Blood pressure increased [None]
